FAERS Safety Report 4903414-6 (Version None)
Quarter: 2006Q1

REPORT INFORMATION
  Report Type: 
  Country: None (occurrence: None)
  Receive Date: 20060203
  Receipt Date: 20060126
  Transmission Date: 20060701
  Serious: Yes (Life-Threatening, Hospitalization, Other)
  Sender: FDA-Public Use
  Company Number: 2005-12-0607

PATIENT
  Age: 67 Year
  Sex: Male

DRUGS (2)
  1. BETAMETHASONE SODIUM PHOSPHATE [Suspect]
     Indication: PAIN
     Dosage: 4MG INTRASPINAL
     Dates: start: 20051124, end: 20051124
  2. XYLOCAINE [Suspect]
     Indication: PAIN
     Dosage: 90MG INTRASPINAL  1 DOSE

REACTIONS (7)
  - APNOEA [None]
  - CIRCULATORY COLLAPSE [None]
  - HYPERHIDROSIS [None]
  - MOTOR DYSFUNCTION [None]
  - NAUSEA [None]
  - PARALYSIS [None]
  - PROCEDURAL COMPLICATION [None]
